FAERS Safety Report 6970419-3 (Version None)
Quarter: 2010Q3

REPORT INFORMATION
  Report Type: 
  Country: None (occurrence: None)
  Receive Date: 20100903
  Receipt Date: 20100824
  Transmission Date: 20110219
  Serious: Yes (Other)
  Sender: FDA-Public Use
  Company Number: 2010MA000384

PATIENT
  Sex: Female

DRUGS (10)
  1. NIFEDIPINE [Suspect]
     Indication: HYPERTENSION
     Dosage: 30 MG
  2. TEGRETOL [Suspect]
     Indication: EPILEPSY
     Dosage: 800 MG; BID
     Dates: start: 20070101
  3. CALCICHEW (CALCIUM CARBONATE) [Suspect]
  4. BUMETANIDE [Suspect]
     Indication: HYPERTENSION
     Dosage: 2 MG
  5. AMITRIPTYLINE (NO PREF. NAME) [Suspect]
     Dosage: 50 MG
  6. METHOTREXATE [Concomitant]
  7. ATORVASTATIN CALCIUM [Concomitant]
  8. LOSARTAN POTASSIUM [Concomitant]
  9. PREDNISOLONE [Concomitant]
  10. OMEPRAZOLE [Concomitant]

REACTIONS (5)
  - ALANINE AMINOTRANSFERASE INCREASED [None]
  - CONDITION AGGRAVATED [None]
  - EPILEPSY [None]
  - GAMMA-GLUTAMYLTRANSFERASE INCREASED [None]
  - RHEUMATOID ARTHRITIS [None]
